FAERS Safety Report 8330278-3 (Version None)
Quarter: 2012Q2

REPORT INFORMATION
  Report Type: 
  Country: None (occurrence: None)
  Receive Date: 20120502
  Receipt Date: 20120423
  Transmission Date: 20120825
  Serious: Yes (Hospitalization, Other)
  Sender: FDA-Public Use
  Company Number: US-MPIJNJ-2011-06029

PATIENT
  Sex: Male
  Weight: 89.977 kg

DRUGS (4)
  1. DEXAMETHASONE [Suspect]
     Indication: MULTIPLE MYELOMA
     Dosage: UNK
     Dates: start: 20110621, end: 20110621
  2. VELCADE [Suspect]
     Indication: MULTIPLE MYELOMA
     Dosage: 1.3 MG, 1/WEEK
     Route: 042
     Dates: start: 20110621
  3. VELCADE [Suspect]
     Dosage: 1 UNK, UNK
     Dates: start: 20110718, end: 20111108
  4. REVLIMID [Suspect]
     Indication: MULTIPLE MYELOMA
     Dosage: UNK
     Dates: start: 20110621, end: 20110701

REACTIONS (5)
  - BRONCHOPULMONARY ASPERGILLOSIS [None]
  - PNEUMONITIS [None]
  - DYSPNOEA [None]
  - CHEST PAIN [None]
  - MYOCARDIAL INFARCTION [None]
